FAERS Safety Report 19965892 (Version 1)
Quarter: 2021Q4

REPORT INFORMATION
  Report Type: Spontaneous
  Country: GB (occurrence: GB)
  Receive Date: 20211019
  Receipt Date: 20211019
  Transmission Date: 20220304
  Serious: Yes (Disabling, Other)
  Sender: FDA-Public Use
  Company Number: GB-MHRA-ADR 26004070

PATIENT
  Age: 61 Year
  Sex: Male
  Weight: 78 kg

DRUGS (3)
  1. NORTRIPTYLINE [Suspect]
     Active Substance: NORTRIPTYLINE
     Indication: Neuralgia
     Dosage: 5 MILLIGRAM
     Route: 048
     Dates: start: 20210403, end: 20210406
  2. ASPIRIN [Concomitant]
     Active Substance: ASPIRIN
     Indication: Pain
     Dosage: 75 MILLIGRAM
     Route: 048
     Dates: start: 20210210, end: 20210220
  3. ACETAMINOPHEN [Concomitant]
     Active Substance: ACETAMINOPHEN
     Indication: Pain
     Dosage: 1 GRAM, FOUR TIMES/DAY (AS NECESSARY)
     Route: 065
     Dates: start: 2018

REACTIONS (3)
  - Tinnitus [Not Recovered/Not Resolved]
  - Condition aggravated [Unknown]
  - Neuralgia [Unknown]

NARRATIVE: CASE EVENT DATE: 20210403
